FAERS Safety Report 8000661-4 (Version None)
Quarter: 2011Q4

REPORT INFORMATION
  Report Type: 
  Country: None (occurrence: None)
  Receive Date: 20111216
  Receipt Date: 20111212
  Transmission Date: 20120403
  Serious: Yes (Death)
  Sender: FDA-Public Use
  Company Number: 2011SP038406

PATIENT
  Age: 63 Year
  Sex: Male

DRUGS (4)
  1. MIRTAZAPINE [Suspect]
     Indication: DEPRESSION
     Dosage: 15 MG;QD;PO  : 30 MG;QD;PO : 45 MG;QD;PO
     Route: 048
     Dates: start: 20100901, end: 20101101
  2. MIRTAZAPINE [Suspect]
     Indication: DEPRESSION
     Dosage: 15 MG;QD;PO  : 30 MG;QD;PO : 45 MG;QD;PO
     Route: 048
     Dates: start: 20100501, end: 20100901
  3. MIRTAZAPINE [Suspect]
     Indication: DEPRESSION
     Dosage: 15 MG;QD;PO  : 30 MG;QD;PO : 45 MG;QD;PO
     Route: 048
     Dates: start: 20101101
  4. INVEGA [Concomitant]

REACTIONS (2)
  - DROWNING [None]
  - COMPLETED SUICIDE [None]
